FAERS Safety Report 7147837-6 (Version None)
Quarter: 2010Q4

REPORT INFORMATION
  Report Type: 
  Country: None (occurrence: None)
  Receive Date: 20101207
  Receipt Date: 20101207
  Transmission Date: 20110411
  Serious: Yes (Hospitalization)
  Sender: FDA-Public Use
  Company Number: None

PATIENT
  Sex: Male
  Weight: 75.2971 kg

DRUGS (7)
  1. IXABEPILONE : DAY1 OF EACH CYCLE [Suspect]
     Indication: METASTATIC RENAL CELL CARCINOMA
     Dosage: 59 MG (CYCLE DAY1)
     Dates: start: 20100623
  2. SUNITINIB: EVERY DAY STARTING ON CYCLE DAY 8 [Suspect]
     Dosage: 37.5 MG (CYCLE DAY8: 6/30/10)
     Dates: start: 20100630
  3. NEXAVAR [Concomitant]
  4. OMEPRAZOLE [Concomitant]
  5. MULTI-VITAMIN [Concomitant]
  6. FENTANYL [Concomitant]
  7. FRAGMIN [Concomitant]

REACTIONS (4)
  - ABDOMINAL PAIN UPPER [None]
  - MALIGNANT NEOPLASM PROGRESSION [None]
  - METASTATIC RENAL CELL CARCINOMA [None]
  - PAIN [None]
